FAERS Safety Report 23242510 (Version 1)
Quarter: 2023Q4

REPORT INFORMATION
  Report Type: Spontaneous
  Country: US (occurrence: None)
  Receive Date: 20231129
  Receipt Date: 20231129
  Transmission Date: 20240110
  Serious: No
  Sender: FDA-Public Use
  Company Number: None

PATIENT
  Age: 76 Year
  Sex: Female

DRUGS (1)
  1. JAKAFI [Suspect]
     Active Substance: RUXOLITINIB
     Dates: start: 20230928

REACTIONS (3)
  - Insomnia [None]
  - Incoherent [None]
  - Therapy interrupted [None]

NARRATIVE: CASE EVENT DATE: 20231129
